FAERS Safety Report 8385844-6 (Version None)
Quarter: 2012Q2

REPORT INFORMATION
  Report Type: 
  Country: None (occurrence: None)
  Receive Date: 20120525
  Receipt Date: 20120517
  Transmission Date: 20120825
  Serious: Yes (Other)
  Sender: FDA-Public Use
  Company Number: JP-JNJFOC-20120405535

PATIENT
  Age: 69 Year
  Sex: Female

DRUGS (7)
  1. LANSOPRAZOLE [Concomitant]
     Route: 065
  2. PREDNISOLONE [Concomitant]
     Route: 065
  3. MAGMITT [Concomitant]
     Route: 048
  4. THEO-DUR [Concomitant]
     Route: 048
  5. MUCOSOLVAN [Concomitant]
     Route: 048
  6. TRAMADOL HYDROCHLORIDE AND ACETAMINOPHEN [Suspect]
     Indication: PAIN
     Dosage: 3DF PER DAY
     Route: 048
     Dates: start: 20120402
  7. MUCOSTA [Concomitant]
     Route: 065

REACTIONS (3)
  - WRONG TECHNIQUE IN DRUG USAGE PROCESS [None]
  - CEREBRAL INFARCTION [None]
  - DYSPHAGIA [None]
